FAERS Safety Report 25475195 (Version 1)
Quarter: 2025Q2

REPORT INFORMATION
  Report Type: Spontaneous
  Country: US (occurrence: US)
  Receive Date: 20250624
  Receipt Date: 20250624
  Transmission Date: 20250717
  Serious: No
  Sender: KRAMER LABORATORIES
  Company Number: US-KRAMERLABS-2024-US-064537

PATIENT
  Age: 35 Year
  Sex: Male

DRUGS (1)
  1. NIZORAL [Suspect]
     Active Substance: KETOCONAZOLE
     Indication: Product used for unknown indication
     Route: 061
     Dates: start: 20241030, end: 20241113

REACTIONS (14)
  - Depressed mood [Recovering/Resolving]
  - Chills [Recovering/Resolving]
  - Migraine [Recovering/Resolving]
  - Nausea [Recovering/Resolving]
  - Insomnia [Recovering/Resolving]
  - Accidental exposure to product [Recovered/Resolved]
  - Eye irritation [Recovered/Resolved]
  - Anxiety [Recovering/Resolving]
  - Libido decreased [Recovering/Resolving]
  - Decreased appetite [Recovering/Resolving]
  - Food craving [Recovering/Resolving]
  - Dehydration [Recovering/Resolving]
  - Fatigue [Recovering/Resolving]
  - Headache [Recovering/Resolving]

NARRATIVE: CASE EVENT DATE: 20241102
